FAERS Safety Report 13974503 (Version 2)
Quarter: 2018Q2

REPORT INFORMATION
  Report Type: Spontaneous
  Country: US (occurrence: US)
  Receive Date: 20170914
  Receipt Date: 20180412
  Transmission Date: 20180711
  Serious: Yes (Other)
  Sender: FDA-Public Use
  Company Number: US-ASTELLAS-2017US018412

PATIENT
  Age: 70 Year
  Sex: Male

DRUGS (1)
  1. XTANDI [Suspect]
     Active Substance: ENZALUTAMIDE
     Indication: PROSTATE CANCER
     Route: 048
     Dates: start: 201704

REACTIONS (8)
  - Fluid retention [Unknown]
  - Headache [Not Recovered/Not Resolved]
  - Restless legs syndrome [Not Recovered/Not Resolved]
  - Malaise [Not Recovered/Not Resolved]
  - Insomnia [Unknown]
  - Nausea [Not Recovered/Not Resolved]
  - Prostatic specific antigen increased [Unknown]
  - Fatigue [Unknown]

NARRATIVE: CASE EVENT DATE: 201704
